FAERS Safety Report 5382433-2 (Version None)
Quarter: 2007Q2

REPORT INFORMATION
  Report Type: 
  Country: None (occurrence: None)
  Receive Date: 20070629
  Receipt Date: 20060731
  Transmission Date: 20071010
  Serious: Yes (Life-Threatening)
  Sender: FDA-Public Use
  Company Number: VISP-PR-0608S-0510

PATIENT
  Age: 70 Year
  Sex: Male

DRUGS (1)
  1. VISIPAQUE [Suspect]
     Indication: ABDOMINAL PAIN
     Dosage: 92 ML; SINGLE DOSE, I.V.
     Route: 042
     Dates: start: 20060731, end: 20060731

REACTIONS (1)
  - ANAPHYLACTOID SHOCK [None]
